FAERS Safety Report 24561714 (Version 1)
Quarter: 2024Q4

REPORT INFORMATION
  Report Type: Spontaneous
  Country: US (occurrence: US)
  Receive Date: 20241029
  Receipt Date: 20241029
  Transmission Date: 20250115
  Serious: Yes (Life-Threatening, Hospitalization)
  Sender: MYLAN
  Company Number: US-MYLANLABS-2024M1097759

PATIENT
  Age: 49 Year
  Sex: Male

DRUGS (7)
  1. DEXAMETHASONE [Suspect]
     Active Substance: DEXAMETHASONE
     Indication: Stridor
     Dosage: 10 MILLIGRAM
     Route: 042
  2. DEXAMETHASONE [Suspect]
     Active Substance: DEXAMETHASONE
     Indication: Tachypnoea
  3. DEXAMETHASONE [Suspect]
     Active Substance: DEXAMETHASONE
     Indication: Dysphonia
  4. ACYCLOVIR [Suspect]
     Active Substance: ACYCLOVIR
     Indication: Herpes simplex
     Dosage: UNK
     Route: 065
  5. RACEPINEPHRINE [Suspect]
     Active Substance: RACEPINEPHRINE
     Indication: Stridor
     Dosage: 0.5 MILLILITER
     Route: 065
  6. RACEPINEPHRINE [Suspect]
     Active Substance: RACEPINEPHRINE
     Indication: Tachypnoea
  7. RACEPINEPHRINE [Suspect]
     Active Substance: RACEPINEPHRINE
     Indication: Dysphonia

REACTIONS (2)
  - Drug ineffective [Unknown]
  - Drug resistance [Unknown]
